FAERS Safety Report 10224467 (Version 1)
Quarter: 2014Q2

REPORT INFORMATION
  Report Type: Spontaneous
  Country: CN (occurrence: CN)
  Receive Date: 20140609
  Receipt Date: 20140609
  Transmission Date: 20141212
  Serious: Yes (Other)
  Sender: FDA-Public Use
  Company Number: CN-PFIZER INC-2014153252

PATIENT
  Age: 48 Year
  Sex: Male
  Weight: 66 kg

DRUGS (3)
  1. PHARMORUBICIN [Suspect]
     Indication: GASTRIC CANCER
     Dosage: 50 MG, 1X/DAY
     Route: 041
     Dates: start: 20130729, end: 20130730
  2. AI HENG [Suspect]
     Indication: GASTRIC CANCER
     Dosage: 150 MG, 1X/DAY
     Route: 041
     Dates: start: 20130729, end: 20130729
  3. XELODA [Suspect]
     Indication: GASTRIC CANCER
     Dosage: 1 G, 2X/DAY
     Route: 048
     Dates: start: 20130729, end: 20130801

REACTIONS (3)
  - Hepatic function abnormal [Recovering/Resolving]
  - Alanine aminotransferase increased [None]
  - Aspartate aminotransferase increased [None]
